FAERS Safety Report 9265517 (Version 1)
Quarter: 2013Q2

REPORT INFORMATION
  Report Type: Report from Study
  Country: AT (occurrence: AT)
  Receive Date: 20130501
  Receipt Date: 20130501
  Transmission Date: 20140414
  Serious: Yes (Death, Hospitalization)
  Sender: FDA-Public Use
  Company Number: AT-SANOFI-AVENTIS-2013SA043781

PATIENT
  Sex: Male

DRUGS (6)
  1. FLUOROURACIL [Suspect]
     Indication: SQUAMOUS CELL CARCINOMA OF HEAD AND NECK
     Dosage: INFUSION ON DAYS 1 TO 5 OF 21 DAYS CYCLE
     Route: 065
  2. CISPLATIN [Suspect]
     Indication: SQUAMOUS CELL CARCINOMA OF HEAD AND NECK
     Dosage: GIVEN AS A 1 H INFUSION ON DAY 1 OF 21 DAYS CYCLE
     Route: 065
  3. DOCETAXEL [Suspect]
     Indication: SQUAMOUS CELL CARCINOMA OF HEAD AND NECK
     Dosage: GIVEN AS A 1 H INFUSION ON DAY 1 OF 21 DAYS CYCLE
     Route: 065
  4. DEXAMETHASONE [Concomitant]
     Indication: PROPHYLAXIS
  5. QUINOLONE ANTIBACTERIALS [Concomitant]
     Indication: ANTIBIOTIC PROPHYLAXIS
  6. PEGFILGRASTIM [Concomitant]
     Indication: PROPHYLAXIS

REACTIONS (6)
  - Systemic inflammatory response syndrome [Unknown]
  - Haemodynamic instability [Unknown]
  - Febrile neutropenia [Unknown]
  - Candida sepsis [Recovering/Resolving]
  - Renal failure [Fatal]
  - Respiratory failure [Fatal]
